FAERS Safety Report 6680777-5 (Version None)
Quarter: 2010Q2

REPORT INFORMATION
  Report Type: 
  Country: None (occurrence: None)
  Receive Date: 20100414
  Receipt Date: 20100409
  Transmission Date: 20101027
  Serious: Yes (Hospitalization)
  Sender: FDA-Public Use
  Company Number: CA-SANOFI-AVENTIS-2010SA006894

PATIENT
  Age: 65 Year
  Sex: Female
  Weight: 90.7 kg

DRUGS (16)
  1. LEFLUNOMIDE [Suspect]
     Indication: RHEUMATOID ARTHRITIS
     Route: 048
     Dates: start: 20100113, end: 20100120
  2. LEFLUNOMIDE [Suspect]
     Route: 048
     Dates: start: 20100121, end: 20100125
  3. LEFLUNOMIDE [Suspect]
     Route: 048
  4. CELEBREX [Concomitant]
  5. FOLIC ACID [Concomitant]
  6. INSULIN GLARGINE [Concomitant]
  7. OMEPRAZOLE [Concomitant]
     Dosage: IN MORNING
  8. METFORMIN HCL [Concomitant]
  9. METFORMIN HCL [Concomitant]
     Dosage: AT LUNCH
  10. NORTRIPTYLINE HCL [Concomitant]
  11. GABAPENTIN [Concomitant]
  12. ZOPICLONE [Concomitant]
  13. DIAMICRON MR [Concomitant]
     Dosage: IN MORNING
  14. FERROUS FUMARATE [Concomitant]
  15. METHOTREXATE [Concomitant]
     Dosage: 5 TIMES A WEEK
  16. PENICILLIN NOS [Concomitant]
     Indication: DENTAL OPERATION
     Dates: start: 20100106, end: 20100106

REACTIONS (7)
  - DEHYDRATION [None]
  - DIARRHOEA [None]
  - HEADACHE [None]
  - HYPERKALAEMIA [None]
  - HYPERTENSIVE CRISIS [None]
  - NAUSEA [None]
  - VOMITING [None]
